FAERS Safety Report 6221167-9 (Version None)
Quarter: 2009Q2

REPORT INFORMATION
  Report Type: 
  Country: None (occurrence: None)
  Receive Date: 20090610
  Receipt Date: 20090603
  Transmission Date: 20091009
  Serious: Yes (Hospitalization)
  Sender: FDA-Public Use
  Company Number: GB-BAYER-200912072BNE

PATIENT
  Age: 39 Year
  Sex: Male

DRUGS (10)
  1. SORAFENIB [Suspect]
     Indication: THYROID CANCER
     Dosage: TOTAL DAILY DOSE: 800 MG
     Dates: start: 20071106, end: 20071213
  2. SORAFENIB [Suspect]
     Dates: start: 20071213, end: 20080422
  3. SORAFENIB [Suspect]
     Dates: start: 20080522, end: 20080528
  4. SORAFENIB [Suspect]
     Dates: start: 20080604, end: 20080606
  5. SORAFENIB [Suspect]
     Dates: start: 20080809
  6. SORAFENIB [Suspect]
     Dates: start: 20081223, end: 20090424
  7. SORAFENIB [Suspect]
     Dates: start: 20081007, end: 20081223
  8. SORAFENIB [Suspect]
     Dates: start: 20080615, end: 20080805
  9. DEXAMETHASONE [Concomitant]
     Indication: DYSPNOEA
     Route: 048
     Dates: start: 20081007
  10. DEXAMETHASONE [Concomitant]
     Route: 048
     Dates: start: 20090112, end: 20090117

REACTIONS (5)
  - DYSPNOEA [None]
  - FLUSHING [None]
  - PYREXIA [None]
  - SWELLING FACE [None]
  - VASODILATATION [None]
